FAERS Safety Report 5018573-7 (Version None)
Quarter: 2006Q2

REPORT INFORMATION
  Report Type: 
  Country: None (occurrence: None)
  Receive Date: 20060414
  Receipt Date: 20051213
  Transmission Date: 20061013
  Serious: No
  Sender: FDA-Public Use
  Company Number: 2005SP004435

PATIENT
  Age: 45 Year
  Sex: 0
  Weight: 81.6475 kg

DRUGS (8)
  1. LUNESTA [Suspect]
     Indication: INSOMNIA
     Dosage: 3 MG;QD;ORAL
     Route: 048
     Dates: start: 20050807, end: 20051210
  2. PAXIL [Concomitant]
  3. SYNTHROID [Concomitant]
  4. PROPANOLOL HYDROCHLORIDE [Concomitant]
  5. OXYCODONE HCL [Concomitant]
  6. AXERT [Concomitant]
  7. PROVA [Concomitant]
  8. PROMETHAZINE HCL [Concomitant]

REACTIONS (1)
  - DYSGEUSIA [None]
